FAERS Safety Report 6398179-8 (Version None)
Quarter: 2009Q4

REPORT INFORMATION
  Report Type: 
  Country: None (occurrence: None)
  Receive Date: 20091013
  Receipt Date: 20091007
  Transmission Date: 20100525
  Serious: Yes (Hospitalization)
  Sender: FDA-Public Use
  Company Number: JP-BRISTOL-MYERS SQUIBB COMPANY-14802763

PATIENT
  Age: 53 Year
  Sex: Male
  Weight: 45 kg

DRUGS (7)
  1. ERBITUX [Suspect]
     Indication: RECTAL CANCER
     Dosage: REGIMEN2:400MG (14JUL-04AUG09)21D, REGIMEN3:390MG (18AUG-08SEP09,ONG)
     Route: 042
     Dates: start: 20090630
  2. IRINOTECAN HCL [Suspect]
     Indication: RECTAL CANCER
     Dosage: REGIMEN2:250MG (14-28JUL09)14D, REGIMEN 3:186MG (18AUG-01SEP09)14D
     Route: 042
     Dates: start: 20090630
  3. FLUOROURACIL [Suspect]
     Indication: RECTAL CANCER
     Dosage: IVBOLUS;REG2-495MG(14-28JU09),REG3-465MG(18AUG-1SEP09) IV;REG1-4131MG,REG2-3300MG,REG3-3100MG-1/2WK
     Route: 040
     Dates: start: 20090630
  4. LEUCOVORIN CALCIUM [Suspect]
     Indication: RECTAL CANCER
     Dosage: REGIMEN:330 MG (14-28JUL); REGIMEN 3:310MG (18AUG-01SEP09)
     Route: 042
     Dates: start: 20090630, end: 20090630
  5. POLARAMINE [Concomitant]
     Indication: PREMEDICATION
     Route: 042
     Dates: start: 20090630, end: 20090908
  6. DECADRON [Concomitant]
     Indication: PREMEDICATION
     Route: 042
     Dates: start: 20090630, end: 20090908
  7. NASEA [Concomitant]
     Indication: PREMEDICATION
     Route: 042
     Dates: start: 20090630, end: 20090908

REACTIONS (1)
  - DECREASED APPETITE [None]
